FAERS Safety Report 4346804-5 (Version None)
Quarter: 2004Q1

REPORT INFORMATION
  Report Type: 
  Country: None (occurrence: None)
  Receive Date: 20040325
  Receipt Date: 20040226
  Transmission Date: 20041129
  Serious: No
  Sender: FDA-Public Use
  Company Number: USA040258294

PATIENT
  Age: 82 Year
  Sex: Female

DRUGS (4)
  1. FORTEO [Suspect]
     Indication: OSTEOPOROSIS
     Dosage: 20 UG/DAY
     Dates: start: 20040101, end: 20040208
  2. FOSAMAX [Concomitant]
  3. SYNTHROID [Concomitant]
  4. CELEBREX [Concomitant]

REACTIONS (3)
  - ASTHENIA [None]
  - CARDIAC DISORDER [None]
  - PALPITATIONS [None]
